FAERS Safety Report 13503934 (Version 1)
Quarter: 2017Q2

REPORT INFORMATION
  Report Type: Report from Study
  Country: CN (occurrence: CN)
  Receive Date: 20170502
  Receipt Date: 20170502
  Transmission Date: 20170830
  Serious: Yes (Other)
  Sender: FDA-Public Use
  Company Number: CN-JNJFOC-20170426060

PATIENT

DRUGS (2)
  1. INFLIXIMAB [Suspect]
     Active Substance: INFLIXIMAB
     Indication: CROHN^S DISEASE
     Dosage: INDUCTION DOSE OF 3 DOSES AT WEEK 0,2 AND 6,
     Route: 042
  2. INFLIXIMAB [Suspect]
     Active Substance: INFLIXIMAB
     Indication: CROHN^S DISEASE
     Dosage: BEGINNING AT WEEK 14
     Route: 042

REACTIONS (14)
  - Pulmonary mycosis [Unknown]
  - Type IV hypersensitivity reaction [Unknown]
  - Gynaecomastia [Unknown]
  - Upper respiratory tract infection [Unknown]
  - Transaminases increased [Recovered/Resolved]
  - Body tinea [Unknown]
  - Pneumonia [Unknown]
  - Serum sickness-like reaction [Unknown]
  - Viral load increased [Recovering/Resolving]
  - Gastroenteritis [Unknown]
  - Musculoskeletal stiffness [Unknown]
  - Furuncle [Unknown]
  - Infection [Unknown]
  - Arthralgia [Unknown]
